FAERS Safety Report 13482827 (Version 3)
Quarter: 2018Q1

REPORT INFORMATION
  Report Type: Report from Study
  Country: US (occurrence: US)
  Receive Date: 20170424
  Receipt Date: 20180117
  Transmission Date: 20180508
  Serious: No
  Sender: FDA-Public Use
  Company Number: US-AMGEN-USASL2017049296

PATIENT
  Age: 74 Year
  Sex: Female
  Weight: 88.89 kg

DRUGS (1)
  1. REPATHA [Suspect]
     Active Substance: EVOLOCUMAB
     Indication: HYPERCHOLESTEROLAEMIA
     Dosage: 140 MG,(TWICE A MONTHLY) Q2WK
     Route: 065

REACTIONS (7)
  - Nasopharyngitis [Unknown]
  - Back pain [Unknown]
  - Cough [Unknown]
  - Rhinorrhoea [Unknown]
  - Oropharyngeal pain [Unknown]
  - Myalgia [Unknown]
  - Wrong technique in product usage process [Unknown]
